FAERS Safety Report 8230573-2 (Version None)
Quarter: 2012Q1

REPORT INFORMATION
  Report Type: 
  Country: None (occurrence: None)
  Receive Date: 20120323
  Receipt Date: 20120316
  Transmission Date: 20120608
  Serious: Yes (Hospitalization)
  Sender: FDA-Public Use
  Company Number: TW-JNJFOC-20120310054

PATIENT
  Age: 66 Year
  Sex: Female

DRUGS (2)
  1. DICLOFENAC SODIUM [Suspect]
     Indication: PAIN MANAGEMENT
     Dosage: 25-JUN
     Route: 065
  2. ULTRACET [Suspect]
     Indication: PAIN MANAGEMENT
     Route: 065

REACTIONS (1)
  - DELIRIUM [None]
